FAERS Safety Report 7305191-0 (Version None)
Quarter: 2011Q1

REPORT INFORMATION
  Report Type: 
  Country: None (occurrence: None)
  Receive Date: 20110222
  Receipt Date: 20110216
  Transmission Date: 20110831
  Serious: Yes (Other)
  Sender: FDA-Public Use
  Company Number: US-PFIZER INC-2010149676

PATIENT
  Sex: Female

DRUGS (2)
  1. R-GENE [Suspect]
     Indication: GROWTH HORMONE DEFICIENCY
     Dosage: 148 CC, ONCE DAILY
     Route: 042
     Dates: start: 20101108, end: 20101108
  2. CLONIDINE [Concomitant]
     Indication: GROWTH HORMONE DEFICIENCY
     Dosage: THAT DAY, ONCE DAILY
     Dates: start: 20101108

REACTIONS (6)
  - THROAT IRRITATION [None]
  - USE OF ACCESSORY RESPIRATORY MUSCLES [None]
  - DYSPNOEA [None]
  - CHEST DISCOMFORT [None]
  - COUGH [None]
  - RESPIRATORY DISTRESS [None]
